FAERS Safety Report 15796943 (Version 2)
Quarter: 2019Q1

REPORT INFORMATION
  Report Type: Spontaneous
  Country: US (occurrence: US)
  Receive Date: 20190108
  Receipt Date: 20190211
  Transmission Date: 20190417
  Serious: No
  Sender: FDA-Public Use
  Company Number: US-BIOGEN-2018BI00643058

PATIENT
  Age: 59 Year
  Sex: Female

DRUGS (1)
  1. PLEGRIDY [Suspect]
     Active Substance: PEGINTERFERON BETA-1A
     Indication: MULTIPLE SCLEROSIS
     Route: 058
     Dates: start: 20181001

REACTIONS (6)
  - Emotional disorder [Recovered/Resolved]
  - Gait inability [Recovered/Resolved]
  - Muscular weakness [Not Recovered/Not Resolved]
  - Fall [Recovered/Resolved]
  - Injection site erythema [Recovered/Resolved]
  - Crying [Recovered/Resolved]

NARRATIVE: CASE EVENT DATE: 20181001
